FAERS Safety Report 18563339 (Version 1)
Quarter: 2020Q4

REPORT INFORMATION
  Report Type: Spontaneous
  Country: US (occurrence: GB)
  Receive Date: 20201201
  Receipt Date: 20201201
  Transmission Date: 20210114
  Serious: Yes (Hospitalization, Other)
  Sender: FDA-Public Use
  Company Number: US-ACCORD-209796

PATIENT
  Age: 17 Year
  Sex: Female

DRUGS (14)
  1. METFORMIN [Concomitant]
     Active Substance: METFORMIN HYDROCHLORIDE
     Indication: PROPHYLAXIS
  2. RISPERIDONE. [Concomitant]
     Active Substance: RISPERIDONE
     Indication: PSYCHOTIC SYMPTOM
     Dosage: GRADUALLY DECREASED TO DISCONTINUATION WITH CROSS-TAPER OF INCREASING DOSES OF CLOZAPINE
  3. NAPROXEN. [Concomitant]
     Active Substance: NAPROXEN
     Indication: PAIN
  4. OLANZAPINE. [Concomitant]
     Active Substance: OLANZAPINE
     Route: 030
  5. CLOZAPINE. [Suspect]
     Active Substance: CLOZAPINE
     Indication: SCHIZOAFFECTIVE DISORDER BIPOLAR TYPE
     Dosage: TITRATED SLOWLY UPWARD
  6. LURASIDONE [Concomitant]
     Active Substance: LURASIDONE
     Indication: PSYCHOTIC SYMPTOM
  7. CLONIDINE. [Concomitant]
     Active Substance: CLONIDINE
     Indication: AGGRESSION
  8. LITHIUM. [Concomitant]
     Active Substance: LITHIUM
     Indication: MOOD SWINGS
     Dosage: 300 MG DAILY AND 600 MG AT BEDTIME
  9. LORAZEPAM. [Concomitant]
     Active Substance: LORAZEPAM
     Indication: ANXIETY
  10. CLOZAPINE. [Suspect]
     Active Substance: CLOZAPINE
     Indication: SCHIZOAFFECTIVE DISORDER BIPOLAR TYPE
     Dosage: CLOZAPINE 100 MG DAILY AND 125 MG AT BEDTIME
  11. CLOZAPINE. [Suspect]
     Active Substance: CLOZAPINE
     Indication: SCHIZOAFFECTIVE DISORDER BIPOLAR TYPE
     Dosage: CLOZAPINE 100 MG DAILY AND 125 MG AT BEDTIME
  12. LITHIUM. [Concomitant]
     Active Substance: LITHIUM
     Indication: MOOD SWINGS
     Dosage: 300 MG DAILY AND 600 MG AT BEDTIME
  13. CLOZAPINE. [Suspect]
     Active Substance: CLOZAPINE
     Indication: SCHIZOAFFECTIVE DISORDER BIPOLAR TYPE
  14. CLOZAPINE. [Suspect]
     Active Substance: CLOZAPINE
     Indication: SCHIZOAFFECTIVE DISORDER BIPOLAR TYPE

REACTIONS (3)
  - Salivary hypersecretion [Recovered/Resolved]
  - Catatonia [Recovered/Resolved]
  - Dry mouth [Recovered/Resolved]
